FAERS Safety Report 4514286-6 (Version None)
Quarter: 2004Q4

REPORT INFORMATION
  Report Type: 
  Country: None (occurrence: None)
  Receive Date: 20041124
  Receipt Date: 20041109
  Transmission Date: 20050328
  Serious: Yes (Hospitalization)
  Sender: FDA-Public Use
  Company Number: JP_041105111

PATIENT
  Age: 4 Year
  Sex: Female

DRUGS (2)
  1. ONCOVIN [Suspect]
     Indication: RHABDOMYOSARCOMA
  2. HYCAMTIN (TOPOTECAN HYDROCHLORIDE) [Concomitant]

REACTIONS (1)
  - GASTROINTESTINAL HAEMORRHAGE [None]
